FAERS Safety Report 11703712 (Version 1)
Quarter: 2015Q4

REPORT INFORMATION
  Report Type: Report from Study
  Country: US (occurrence: US)
  Receive Date: 20151106
  Receipt Date: 20151106
  Transmission Date: 20160304
  Serious: No
  Sender: FDA-Public Use
  Company Number: US-AMGEN-USASL2015113417

PATIENT
  Age: 70 Year
  Sex: Female

DRUGS (1)
  1. ENBREL [Suspect]
     Active Substance: ETANERCEPT
     Indication: PSORIASIS
     Dosage: UNK UNK, QWK
     Route: 065
     Dates: start: 20061218

REACTIONS (4)
  - Bronchitis chronic [Recovered/Resolved]
  - Nasopharyngitis [Unknown]
  - Psoriasis [Unknown]
  - Nasal congestion [Unknown]

NARRATIVE: CASE EVENT DATE: 2015
